FAERS Safety Report 7150472-7 (Version None)
Quarter: 2010Q4

REPORT INFORMATION
  Report Type: 
  Country: None (occurrence: None)
  Receive Date: 20101210
  Receipt Date: 20101208
  Transmission Date: 20110411
  Serious: Yes (Death)
  Sender: FDA-Public Use
  Company Number: PHHY2010CA83270

PATIENT
  Sex: Male

DRUGS (5)
  1. ALISKIREN ALI+ [Suspect]
     Indication: HYPERTENSION
     Dosage: UNK
     Route: 048
  2. DIOVAN [Concomitant]
     Dosage: 320 MG, UNK
  3. METOPROLOL [Concomitant]
     Dosage: 100 MG, BID
     Dates: start: 20100722
  4. HYDROCHLOROTHIAZIDE [Concomitant]
     Dosage: 25 MG, UNK
  5. NIFEDIPINE [Concomitant]
     Dosage: 60 MG, UNK

REACTIONS (3)
  - BLOOD CREATININE INCREASED [None]
  - BLOOD PRESSURE INCREASED [None]
  - DEATH [None]
